FAERS Safety Report 22165161 (Version 2)
Quarter: 2023Q2

REPORT INFORMATION
  Report Type: Spontaneous
  Country: PL (occurrence: PL)
  Receive Date: 20230403
  Receipt Date: 20230629
  Transmission Date: 20230722
  Serious: Yes (Other)
  Sender: FDA-Public Use
  Company Number: PL-JNJFOC-20230373367

PATIENT
  Age: 59 Year
  Sex: Male

DRUGS (5)
  1. DARZALEX [Suspect]
     Active Substance: DARATUMUMAB
     Indication: Plasma cell myeloma
     Dosage: INDUCTION- CYCLE 1-2, 8 DOSES?                CYCLE 3-4, 4 DOSES?CONSOLIDATION- CYCLE 1-2, 4 DOSES
     Route: 058
     Dates: start: 202301
  2. VELCADE [Suspect]
     Active Substance: BORTEZOMIB
     Indication: Plasma cell myeloma
     Dosage: FOR INDUCTION AND CONSOLIDATION CYCLES TWICE A WEEK
     Route: 058
     Dates: start: 202301
  3. THALIDOMIDE [Suspect]
     Active Substance: THALIDOMIDE
     Indication: Plasma cell myeloma
     Route: 048
     Dates: start: 202301
  4. DEXAMETHASONE [Suspect]
     Active Substance: DEXAMETHASONE
     Indication: Plasma cell myeloma
     Dosage: INDUCTION CYCLE OF 1-2, ON DAY 1,2,8,9,15,16,22,23 AND FOR CYCLE 3-4 ON DAY 1,2 ?PO/IV
     Route: 048
     Dates: start: 202301
  5. DEXAMETHASONE [Suspect]
     Active Substance: DEXAMETHASONE
     Dosage: INDUCTION CYCLE 3-4 ON DAY 8,9,15,16 AND CONSOLIDATION CYCLE 1-2 ON DAY 1,2,8,9,15,16?PO/IV
     Route: 048

REACTIONS (1)
  - Thrombosis [Unknown]
